FAERS Safety Report 11596163 (Version 1)
Quarter: 2015Q4

REPORT INFORMATION
  Report Type: Spontaneous
  Country: US (occurrence: None)
  Receive Date: 20151005
  Receipt Date: 20151005
  Transmission Date: 20160304
  Serious: Yes (Hospitalization)
  Sender: FDA-Public Use
  Company Number: None

PATIENT
  Age: 6 Year
  Sex: Male

DRUGS (1)
  1. LUMIZYME [Suspect]
     Active Substance: ALGLUCOSIDASE ALFA
     Indication: GLYCOGEN STORAGE DISEASE TYPE II
     Dosage: 400MG, IN 250ML NS, EVERY TWO WEEKS IV VIA PUMP
     Route: 042
     Dates: start: 20140910

REACTIONS (2)
  - Hypoxia [None]
  - Respiratory distress [None]

NARRATIVE: CASE EVENT DATE: 20151001
